FAERS Safety Report 16536141 (Version 3)
Quarter: 2019Q3

REPORT INFORMATION
  Report Type: Spontaneous
  Country: KR (occurrence: KR)
  Receive Date: 20190705
  Receipt Date: 20190721
  Transmission Date: 20191004
  Serious: No
  Sender: FDA-Public Use
  Company Number: PHHY2019KR154772

PATIENT
  Age: 57 Year
  Sex: Male

DRUGS (1)
  1. IMATINIB. [Suspect]
     Active Substance: IMATINIB MESYLATE
     Indication: CHRONIC MYELOID LEUKAEMIA
     Dosage: 400 MG, UNK
     Route: 065

REACTIONS (8)
  - Hypophagia [Unknown]
  - Oral discomfort [Unknown]
  - Dehydration [Unknown]
  - Nausea [Unknown]
  - Malnutrition [Unknown]
  - Decreased appetite [Unknown]
  - Stomatitis [Unknown]
  - Skin exfoliation [Unknown]
